FAERS Safety Report 12898287 (Version 1)
Quarter: 2016Q4

REPORT INFORMATION
  Report Type: Spontaneous
  Country: US (occurrence: US)
  Receive Date: 20161031
  Receipt Date: 20161031
  Transmission Date: 20170207
  Serious: No
  Sender: FDA-Public Use
  Company Number: US-MISSION PHARMACAL COMPANY-1059106

PATIENT
  Age: 49 Year
  Sex: Female

DRUGS (1)
  1. THIOLA [Suspect]
     Active Substance: TIOPRONIN
     Indication: CYSTINURIA
     Route: 065
     Dates: start: 20140823

REACTIONS (4)
  - Dyspnoea [Unknown]
  - Vomiting [Unknown]
  - Abdominal distension [Unknown]
  - Fluid retention [Unknown]
